FAERS Safety Report 10955873 (Version 4)
Quarter: 2015Q2

REPORT INFORMATION
  Report Type: Spontaneous
  Country: US (occurrence: None)
  Receive Date: 20150324
  Receipt Date: 20150629
  Transmission Date: 20150821
  Serious: Yes (Hospitalization, Other)
  Sender: FDA-Public Use
  Company Number: DSU-2014-120407

PATIENT
  Age: 71 Year
  Sex: Female
  Weight: 60 kg

DRUGS (5)
  1. SPIRONOLACTONE. [Concomitant]
     Active Substance: SPIRONOLACTONE
  2. BENICAR [Suspect]
     Active Substance: OLMESARTAN MEDOXOMIL
     Indication: HYPERTENSION
     Route: 048
     Dates: start: 201109, end: 201201
  3. LOPRESSOR [Concomitant]
     Active Substance: METOPROLOL TARTRATE
  4. COUMADIN /00014802/ (WARFARIN SODIUM) [Concomitant]
  5. BENICAR HCT [Suspect]
     Active Substance: HYDROCHLOROTHIAZIDE\OLMESARTAN MEDOXOMIL
     Indication: PRODUCT USED FOR UNKNOWN INDICATION
     Route: 048
     Dates: start: 200705, end: 201108

REACTIONS (37)
  - Gastrooesophageal reflux disease [None]
  - Palpitations [None]
  - Colitis microscopic [None]
  - Gastritis [None]
  - Deep vein thrombosis [None]
  - Suicidal ideation [None]
  - Polyp [None]
  - Pancreatitis [None]
  - Intestinal ulcer [None]
  - Rectal haemorrhage [None]
  - Anxiety [None]
  - Diverticulum [None]
  - Short-bowel syndrome [None]
  - Ascites [None]
  - Drug administration error [None]
  - Hyponatraemia [None]
  - Impaired gastric emptying [None]
  - Ileus paralytic [None]
  - Malnutrition [None]
  - Atrial fibrillation [None]
  - Pulmonary embolism [None]
  - Malabsorption [None]
  - Irritable bowel syndrome [None]
  - Dehydration [None]
  - Large intestine polyp [None]
  - Intestinal perforation [None]
  - Weight decreased [None]
  - Duodenitis [None]
  - Coeliac disease [None]
  - Generalised oedema [None]
  - Depression [None]
  - Hypotension [None]
  - Bacterial test positive [None]
  - Enteritis [None]
  - Intestinal stenosis [None]
  - Gastrointestinal disorder [None]
  - Emotional distress [None]

NARRATIVE: CASE EVENT DATE: 2011
